FAERS Safety Report 15097036 (Version 1)
Quarter: 2018Q3

REPORT INFORMATION
  Report Type: Spontaneous
  Country: US (occurrence: US)
  Receive Date: 20180702
  Receipt Date: 20180702
  Transmission Date: 20181010
  Serious: No
  Sender: FDA-Public Use
  Company Number: US-GLAXOSMITHKLINE-US2018GSK112787

PATIENT
  Sex: Male

DRUGS (1)
  1. NUCALA [Suspect]
     Active Substance: MEPOLIZUMAB
     Indication: PRODUCT USED FOR UNKNOWN INDICATION
     Dosage: 100 MG, CYC (MONTHLY)
     Route: 058

REACTIONS (4)
  - Injection site vesicles [Recovered/Resolved]
  - Injection site erythema [Recovered/Resolved]
  - Urticaria [Recovered/Resolved]
  - Injection site pruritus [Recovered/Resolved]
